FAERS Safety Report 8462633-5 (Version None)
Quarter: 2012Q2

REPORT INFORMATION
  Report Type: 
  Country: None (occurrence: None)
  Receive Date: 20120625
  Receipt Date: 20120622
  Transmission Date: 20120825
  Serious: Yes (Hospitalization)
  Sender: FDA-Public Use
  Company Number: IT-ROCHE-1071896

PATIENT
  Sex: Male

DRUGS (4)
  1. CYCLOPHOSPHAMIDE [Suspect]
     Indication: LYMPHOMA
     Route: 042
     Dates: start: 20111109, end: 20111230
  2. DOXORUBICIN HCL [Suspect]
     Indication: LYMPHOMA
     Route: 042
     Dates: start: 20111109, end: 20111109
  3. VINCRISTINE SULFATE [Concomitant]
     Indication: LYMPHOMA
     Route: 040
     Dates: start: 20111109, end: 20111230
  4. MABTHERA [Suspect]
     Indication: LYMPHOMA
     Route: 042
     Dates: start: 20111109, end: 20111230

REACTIONS (3)
  - FEBRILE NEUTROPENIA [None]
  - GASTROOESOPHAGEAL REFLUX DISEASE [None]
  - VENTRICULAR TACHYCARDIA [None]
